FAERS Safety Report 10052441 (Version 1)
Quarter: 2014Q2

REPORT INFORMATION
  Report Type: Spontaneous
  Country: US (occurrence: None)
  Receive Date: 20140401
  Receipt Date: 20140401
  Transmission Date: 20141212
  Serious: Yes (Other)
  Sender: FDA-Public Use
  Company Number: None

PATIENT
  Age: 14 Year
  Sex: Female
  Weight: 48.08 kg

DRUGS (1)
  1. KENALOG [Suspect]
     Indication: BURSITIS
     Dosage: 2 INJECTIONS

REACTIONS (1)
  - Menorrhagia [None]
